FAERS Safety Report 9758687 (Version 1)
Quarter: 2013Q4

REPORT INFORMATION
  Report Type: Spontaneous
  Country: US (occurrence: None)
  Receive Date: 20131216
  Receipt Date: 20131216
  Transmission Date: 20140711
  Serious: Yes (Hospitalization)
  Sender: FDA-Public Use
  Company Number: RB-51682-2013

PATIENT
  Age: 45 Year
  Sex: Male

DRUGS (2)
  1. SUBOXONE 8 MG [Suspect]
     Indication: DRUG DEPENDENCE
     Dosage: (UNKNOWN DOSAGE DETAILS - ^TOOK PIECES^ SUBLINGUAL)
  2. SUBOXONE 8 MG [Suspect]
     Indication: DRUG DEPENDENCE
     Dosage: (SUBOXONE FILM; DOSAGE DETAILS UNKNOWN- ^TAKING PIECES^ SUBLINGUAL)

REACTIONS (9)
  - Substance abuse [None]
  - Wrong technique in drug usage process [None]
  - Asthenia [None]
  - Decreased appetite [None]
  - Weight decreased [None]
  - Constipation [None]
  - Hot flush [None]
  - Cold sweat [None]
  - Nausea [None]
